FAERS Safety Report 13015803 (Version 2)
Quarter: 2016Q4

REPORT INFORMATION
  Report Type: Spontaneous
  Country: IT (occurrence: IT)
  Receive Date: 20161212
  Receipt Date: 20161214
  Transmission Date: 20170207
  Serious: Yes (Life-Threatening, Hospitalization)
  Sender: FDA-Public Use
  Company Number: IT-ASTRAZENECA-2016SF28906

PATIENT
  Age: 6357 Day
  Sex: Female

DRUGS (1)
  1. SEROQUEL [Suspect]
     Active Substance: QUETIAPINE FUMARATE
     Indication: DRUG ABUSE
     Dosage: 7.0DF ONCE/SINGLE ADMINISTRATION
     Route: 048
     Dates: start: 20140423, end: 20140423

REACTIONS (6)
  - Drug abuse [Recovering/Resolving]
  - Suicide attempt [Unknown]
  - Somnolence [Recovering/Resolving]
  - Haemoglobin decreased [Unknown]
  - Urine cannabinoids increased [Unknown]
  - Haematocrit decreased [Unknown]

NARRATIVE: CASE EVENT DATE: 20140423
